FAERS Safety Report 5802106-9 (Version None)
Quarter: 2008Q3

REPORT INFORMATION
  Report Type: 
  Country: None (occurrence: None)
  Receive Date: 20080707
  Receipt Date: 20080630
  Transmission Date: 20090109
  Serious: Yes (Hospitalization)
  Sender: FDA-Public Use
  Company Number: PHHY2008FR12582

PATIENT
  Sex: Female

DRUGS (6)
  1. TEGRETOL [Suspect]
     Dosage: 400 MG, TID
     Route: 048
  2. FENOFIBRATE [Concomitant]
     Dosage: 67MG
     Route: 048
  3. CORDARONE [Concomitant]
  4. COVERSYL [Concomitant]
  5. BISOPROLOL FUMARATE [Concomitant]
     Dosage: 1.25MG
     Route: 048
  6. LASIX [Concomitant]
     Dosage: 40 MG, UNK
     Route: 048

REACTIONS (10)
  - BALANCE DISORDER [None]
  - BLOOD CREATININE ABNORMAL [None]
  - CEREBELLAR SYNDROME [None]
  - CULTURE URINE POSITIVE [None]
  - DIZZINESS [None]
  - DRUG LEVEL INCREASED [None]
  - ESCHERICHIA INFECTION [None]
  - NAUSEA [None]
  - PYELONEPHRITIS ACUTE [None]
  - RENAL FAILURE ACUTE [None]
